FAERS Safety Report 8381795-1 (Version None)
Quarter: 2012Q2

REPORT INFORMATION
  Report Type: 
  Country: None (occurrence: None)
  Receive Date: 20120522
  Receipt Date: 20120522
  Transmission Date: 20120825
  Serious: Yes (Death)
  Sender: FDA-Public Use
  Company Number: None

PATIENT
  Sex: Male
  Weight: 79.5 kg

DRUGS (2)
  1. RELISTOR [Concomitant]
  2. ZYTIGA [Suspect]
     Indication: PROSTATE CANCER
     Dosage: 1000 MG 1/DAY ORAL, ALWAYS ON EMPTY STOMACH
     Route: 048
     Dates: start: 20120122, end: 20120310

REACTIONS (13)
  - DIARRHOEA [None]
  - ABDOMINAL DISTENSION [None]
  - OXYGEN SATURATION DECREASED [None]
  - RESPIRATORY ARREST [None]
  - FAECALOMA [None]
  - MOVEMENT DISORDER [None]
  - ASTHENIA [None]
  - BLOOD PRESSURE DECREASED [None]
  - SPEECH DISORDER [None]
  - METASTASES TO LIVER [None]
  - DYSSTASIA [None]
  - RESPIRATORY TRACT CONGESTION [None]
  - PYREXIA [None]
